FAERS Safety Report 4375010-3 (Version None)
Quarter: 2004Q2

REPORT INFORMATION
  Report Type: 
  Country: None (occurrence: None)
  Receive Date: 20040604
  Receipt Date: 20040519
  Transmission Date: 20050107
  Serious: Yes (Disabling)
  Sender: FDA-Public Use
  Company Number: 2004-FF-00210FF

PATIENT
  Age: 30 Month
  Sex: Female

DRUGS (4)
  1. VIRAMUNE [Suspect]
     Indication: VERTICAL INFECTION TRANSMISSION
     Route: 048
     Dates: start: 20000727, end: 20000729
  2. DIDANOSINE (DIDANOSINE) [Concomitant]
  3. LAMIVUDINE (LAMIVUDINE) [Concomitant]
  4. RITONAVIR (RITONAVIR) [Concomitant]

REACTIONS (7)
  - ANAEMIA [None]
  - GASTROINTESTINAL DISORDER [None]
  - NEOPLASM MALIGNANT [None]
  - NEUTROPENIA [None]
  - RETINAL INJURY [None]
  - SKIN DISORDER [None]
  - STRABISMUS [None]
